FAERS Safety Report 6987670-9 (Version None)
Quarter: 2010Q3

REPORT INFORMATION
  Report Type: 
  Country: None (occurrence: None)
  Receive Date: 20100916
  Receipt Date: 20100903
  Transmission Date: 20110219
  Serious: Yes (Hospitalization)
  Sender: FDA-Public Use
  Company Number: US-ELI_LILLY_AND_COMPANY-US201009002471

PATIENT
  Sex: Female

DRUGS (19)
  1. FORTEO [Suspect]
     Indication: OSTEOPENIA
     Dosage: 20 UG, DAILY (1/D)
     Dates: start: 20090201
  2. PROGRAF [Concomitant]
     Dosage: 0.5 MG, 2/D
  3. VFEND [Concomitant]
     Dosage: 200 MG, 2/D
  4. PREDNISONE                         /00044701/ [Concomitant]
     Dosage: 0.5 MG, DAILY (1/D)
  5. SIROLIMUS [Concomitant]
     Dosage: 0.5 ML, DAILY (1/D)
  6. BACTRIM [Concomitant]
     Dosage: 160 MILIGRAMS 1/2 TABLET 3 TIMES WEEKY
  7. VITAMIN D [Concomitant]
     Dosage: 50000 UNITS ONCE A MONTH
  8. MULTIPLE VITAMINS [Concomitant]
     Dosage: UNK, DAILY (1/D)
  9. FOLIC ACID [Concomitant]
     Dosage: 1 MG, DAILY (1/D)
  10. CALCIUM CARBONATE [Concomitant]
     Dosage: 300 MG, DAILY (1/D)
  11. LIPITOR [Concomitant]
     Dosage: 40 MG, DAILY (1/D)
  12. ASPIRIN [Concomitant]
     Dosage: 325 MG, DAILY (1/D)
  13. ATENOLOL [Concomitant]
     Dosage: 50 MG, DAILY (1/D)
  14. ALPRAZOLAM [Concomitant]
     Dosage: 0.5MILLIGRAMS AS NEEDED UP TO 4 TABLETS DAILY
  15. PERCOCET [Concomitant]
     Dosage: 1 TO 2 EVERY 6 HOURS WITH A MAXIMUM OF 4 TABLETS DAILY
  16. MAGNESIUM [Concomitant]
     Dosage: 64 MG, DAILY (1/D)
  17. ATROVENT [Concomitant]
     Dosage: 0.6 TWICE DAILY TO 4 TIMES DAILY AS NEEDED
  18. RESTASIS [Concomitant]
     Dosage: 0.4 ML, DAILY (1/D)
  19. NITROGLYCERIN [Concomitant]
     Dosage: UNK, AS NEEDED

REACTIONS (3)
  - CARDIAC FAILURE CONGESTIVE [None]
  - DEHYDRATION [None]
  - FEELING ABNORMAL [None]
